APPROVED DRUG PRODUCT: ISOSORBIDE DINITRATE
Active Ingredient: ISOSORBIDE DINITRATE
Strength: 10MG
Dosage Form/Route: TABLET;ORAL
Application: A088088 | Product #002 | TE Code: AB
Applicant: HIKMA INTERNATIONAL PHARMACEUTICALS LLC
Approved: Oct 29, 1987 | RLD: No | RS: No | Type: RX